FAERS Safety Report 20381417 (Version 1)
Quarter: 2022Q1

REPORT INFORMATION
  Report Type: Spontaneous
  Country: TR (occurrence: TR)
  Receive Date: 20220127
  Receipt Date: 20220127
  Transmission Date: 20220423
  Serious: Yes (Hospitalization, Other)
  Sender: FDA-Public Use
  Company Number: TR-ATLANTIDE PHARMACEUTICALS AG-2022ATL000003

PATIENT
  Age: 17 Year
  Sex: Female

DRUGS (1)
  1. VENLAFAXINE [Suspect]
     Active Substance: VENLAFAXINE HYDROCHLORIDE
     Indication: Suicide attempt
     Dosage: 3900 MILLIGRAM
     Route: 048

REACTIONS (5)
  - Lactic acidosis [Recovered/Resolved]
  - Intentional overdose [Recovered/Resolved]
  - Sedation [Recovered/Resolved]
  - Tachycardia [Recovered/Resolved]
  - Product use in unapproved indication [Recovered/Resolved]
